FAERS Safety Report 16832190 (Version 1)
Quarter: 2019Q3

REPORT INFORMATION
  Report Type: Spontaneous
  Country: US (occurrence: US)
  Receive Date: 20190920
  Receipt Date: 20190920
  Transmission Date: 20191005
  Serious: No
  Sender: FDA-Public Use
  Company Number: US-BRAINTREE LABORATORIES-180637

PATIENT
  Age: 62 Year
  Sex: Female
  Weight: 61.23 kg

DRUGS (1)
  1. SUPREP BOWEL PREP [Suspect]
     Active Substance: MAGNESIUM SULFATE\POTASSIUM SULFATE\SODIUM SULFATE
     Indication: COLONOSCOPY
     Dosage: 2 X 6 OZ. BOTTLE
     Route: 048
     Dates: start: 20181217, end: 20181218

REACTIONS (7)
  - Dry mouth [None]
  - Abdominal distension [None]
  - Nausea [None]
  - Drug ineffective [None]
  - Headache [None]
  - Abdominal pain [None]
  - Dry skin [None]

NARRATIVE: CASE EVENT DATE: 20181217
